FAERS Safety Report 4333716-6 (Version None)
Quarter: 2004Q2

REPORT INFORMATION
  Report Type: 
  Country: None (occurrence: None)
  Receive Date: 20040402
  Receipt Date: 20040326
  Transmission Date: 20050107
  Serious: Yes (Other)
  Sender: FDA-Public Use
  Company Number: 200402148

PATIENT
  Age: 24 Year
  Sex: Female

DRUGS (2)
  1. BOTOX COSMETIC [Suspect]
     Indication: SKIN WRINKLING
     Dosage: 45 UNITS PRN IM
     Route: 030
     Dates: start: 20040325
  2. BIRTH CONTROL PILLS [Concomitant]

REACTIONS (5)
  - COLD SWEAT [None]
  - CONVULSION [None]
  - HYPERHIDROSIS [None]
  - SYNCOPE [None]
  - SYNCOPE VASOVAGAL [None]
